FAERS Safety Report 24379296 (Version 2)
Quarter: 2025Q1

REPORT INFORMATION
  Report Type: Spontaneous
  Country: JP (occurrence: JP)
  Receive Date: 20240930
  Receipt Date: 20250131
  Transmission Date: 20250409
  Serious: Yes (Death, Other)
  Sender: MERCK
  Company Number: JP-MSD-M2024-35373

PATIENT
  Age: 78 Year
  Sex: Male

DRUGS (2)
  1. CANCIDAS [Suspect]
     Active Substance: CASPOFUNGIN ACETATE
     Indication: Candida infection
     Dosage: UNK, QD
     Route: 041
     Dates: start: 20240903, end: 20240905
  2. MORPHINE SULFATE [Concomitant]
     Active Substance: MORPHINE SULFATE
     Route: 065

REACTIONS (4)
  - Pneumonia bacterial [Fatal]
  - Pulmonary haemorrhage [Fatal]
  - Hypersensitivity pneumonitis [Fatal]
  - Product preparation issue [Unknown]

NARRATIVE: CASE EVENT DATE: 20240903
